FAERS Safety Report 21172821 (Version 2)
Quarter: 2022Q4

REPORT INFORMATION
  Report Type: Report from Study
  Country: US (occurrence: US)
  Receive Date: 20220804
  Receipt Date: 20221221
  Transmission Date: 20230113
  Serious: Yes (Other)
  Sender: FDA-Public Use
  Company Number: US-BRISTOL-MYERS SQUIBB COMPANY-2022-044070

PATIENT
  Age: 62 Year
  Sex: Female

DRUGS (1)
  1. ZEPOSIA [Suspect]
     Active Substance: OZANIMOD HYDROCHLORIDE
     Indication: Multiple sclerosis
     Route: 048
     Dates: start: 20220426

REACTIONS (12)
  - Malaise [Unknown]
  - Blindness transient [Not Recovered/Not Resolved]
  - Constipation [Recovered/Resolved]
  - Fatigue [Recovering/Resolving]
  - Pharyngitis [Recovering/Resolving]
  - Oropharyngeal pain [Recovering/Resolving]
  - Headache [Not Recovered/Not Resolved]
  - Diplopia [Not Recovered/Not Resolved]
  - Vomiting [Recovering/Resolving]
  - Nausea [Recovering/Resolving]
  - Respiratory tract congestion [Recovering/Resolving]
  - Feeling abnormal [Recovering/Resolving]

NARRATIVE: CASE EVENT DATE: 20220518
